FAERS Safety Report 4727616-7 (Version None)
Quarter: 2005Q3

REPORT INFORMATION
  Report Type: 
  Country: None (occurrence: None)
  Receive Date: 20050728
  Receipt Date: 20050601
  Transmission Date: 20060218
  Serious: Yes (Other)
  Sender: FDA-Public Use
  Company Number: JP-SANOFI-SYNTHELABO-A01200503991

PATIENT
  Sex: Male

DRUGS (3)
  1. MYSLEE [Suspect]
     Indication: DRUG USE FOR UNKNOWN INDICATION
     Dosage: 10 MG
     Route: 048
     Dates: start: 20050512, end: 20050616
  2. GASTER [Concomitant]
     Indication: DRUG USE FOR UNKNOWN INDICATION
     Dosage: UNK
     Route: 048
  3. AMARYL [Concomitant]
     Indication: DRUG USE FOR UNKNOWN INDICATION
     Dosage: UNK
     Route: 048

REACTIONS (6)
  - BLOOD SODIUM DECREASED [None]
  - CEREBRAL INFARCTION [None]
  - HYPONATRAEMIA [None]
  - HYPOTHALAMO-PITUITARY DISORDERS [None]
  - INAPPROPRIATE ANTIDIURETIC HORMONE SECRETION [None]
  - SHOCK [None]
